FAERS Safety Report 5637747-5 (Version None)
Quarter: 2008Q1

REPORT INFORMATION
  Report Type: 
  Country: None (occurrence: None)
  Receive Date: 20080219
  Receipt Date: 20080201
  Transmission Date: 20080703
  Serious: Yes (Other)
  Sender: FDA-Public Use
  Company Number: 8029586

PATIENT
  Age: 25 Year
  Sex: Female

DRUGS (5)
  1. KEPPRA [Suspect]
     Indication: CONVULSION
     Dosage: 500 MG 2/D PO
     Route: 048
     Dates: start: 20080101, end: 20080108
  2. KEPPRA [Suspect]
     Indication: EPILEPSY
     Dosage: 500 MG 2/D PO
     Route: 048
     Dates: start: 20080101, end: 20080108
  3. KEPPRA [Suspect]
     Indication: CONVULSION
     Dosage: 750 MG 2/D PO
     Route: 048
     Dates: start: 20080108, end: 20080201
  4. KEPPRA [Suspect]
     Indication: EPILEPSY
     Dosage: 750 MG 2/D PO
     Route: 048
     Dates: start: 20080108, end: 20080201
  5. TEGRETOL [Concomitant]

REACTIONS (4)
  - CRYING [None]
  - DEPRESSION [None]
  - OVERDOSE [None]
  - SUICIDE ATTEMPT [None]
